FAERS Safety Report 25143981 (Version 1)
Quarter: 2025Q2

REPORT INFORMATION
  Report Type: Report from Study
  Country: US (occurrence: US)
  Receive Date: 20250401
  Receipt Date: 20250401
  Transmission Date: 20250717
  Serious: Yes (Other)
  Sender: ALEXION PHARMACEUTICALS
  Company Number: US-AstraZeneca-CH-00836132A

PATIENT

DRUGS (1)
  1. ACALABRUTINIB [Suspect]
     Active Substance: ACALABRUTINIB
     Indication: Lymphocytosis
     Dosage: 100 MILLIGRAM, Q12H

REACTIONS (4)
  - Renal impairment [Unknown]
  - Dyspepsia [Unknown]
  - Off label use [Unknown]
  - Full blood count decreased [Unknown]
